FAERS Safety Report 20972785 (Version 1)
Quarter: 2022Q2

REPORT INFORMATION
  Report Type: Spontaneous
  Country: US (occurrence: US)
  Receive Date: 20220617
  Receipt Date: 20220617
  Transmission Date: 20220720
  Serious: Yes (Hospitalization)
  Sender: FDA-Public Use
  Company Number: US-STRIDES ARCOLAB LIMITED-2021SP030476

PATIENT
  Age: 65 Year
  Sex: Male

DRUGS (4)
  1. DEXAMETHASONE [Suspect]
     Active Substance: DEXAMETHASONE
     Indication: Immune thrombocytopenia
     Dosage: 40 MILLIGRAM; DAILY FOR 4 DAYS
     Route: 042
  2. COVID-19 VACCINE MRNA (MRNA 1273) [Concomitant]
     Indication: COVID-19 immunisation
     Dosage: TWO DOSES
     Route: 065
  3. HEPARIN [Concomitant]
     Active Substance: HEPARIN SODIUM
     Indication: Anticoagulant therapy
     Dosage: UNK
     Route: 065
  4. BIVALIRUDIN [Concomitant]
     Active Substance: BIVALIRUDIN
     Indication: Deep vein thrombosis
     Dosage: 0.02 MILLIGRAM/KILOGRAM; BODY WEIGHT PER HOUR
     Route: 065

REACTIONS (2)
  - Staphylococcal infection [Unknown]
  - Drug ineffective [Unknown]
